FAERS Safety Report 25723711 (Version 2)
Quarter: 2025Q3

REPORT INFORMATION
  Report Type: Spontaneous
  Country: JP (occurrence: JP)
  Receive Date: 20250825
  Receipt Date: 20250910
  Transmission Date: 20251021
  Serious: Yes (Other)
  Sender: UCB
  Company Number: JP-UCBSA-2025051804

PATIENT
  Age: 37 Year
  Sex: Female

DRUGS (9)
  1. LEVETIRACETAM [Suspect]
     Active Substance: LEVETIRACETAM
     Indication: Infantile spasms
  2. LEVETIRACETAM [Suspect]
     Active Substance: LEVETIRACETAM
     Indication: Off label use
  3. ACETAZOLAMIDE [Suspect]
     Active Substance: ACETAZOLAMIDE
     Indication: Infantile spasms
  4. CLOBAZAM [Suspect]
     Active Substance: CLOBAZAM
     Indication: Infantile spasms
  5. ZONISAMIDE [Suspect]
     Active Substance: ZONISAMIDE
     Indication: Infantile spasms
  6. VALPROIC ACID [Concomitant]
     Active Substance: VALPROIC ACID
     Indication: Infantile spasms
  7. CLONAZEPAM [Concomitant]
     Active Substance: CLONAZEPAM
     Indication: Epilepsy
  8. FENFLURAMINE HYDROCHLORIDE [Concomitant]
     Active Substance: FENFLURAMINE HYDROCHLORIDE
     Indication: Lennox-Gastaut syndrome
  9. FENFLURAMINE HYDROCHLORIDE [Concomitant]
     Active Substance: FENFLURAMINE HYDROCHLORIDE

REACTIONS (3)
  - Status epilepticus [Recovering/Resolving]
  - Multiple-drug resistance [Unknown]
  - Off label use [Unknown]
